FAERS Safety Report 6015495-X (Version None)
Quarter: 2008Q4

REPORT INFORMATION
  Report Type: 
  Country: None (occurrence: None)
  Receive Date: 20081218
  Receipt Date: 20081204
  Transmission Date: 20090506
  Serious: Yes (Hospitalization)
  Sender: FDA-Public Use
  Company Number: CIP08002596

PATIENT
  Age: 71 Year
  Sex: Female

DRUGS (1)
  1. FURADANTIN [Suspect]
     Indication: URINARY TRACT INFECTION
     Dosage: 150 MG DAILY, ORAL
     Route: 048
     Dates: start: 20080917, end: 20080923

REACTIONS (6)
  - ATELECTASIS [None]
  - COUGH [None]
  - INFLAMMATION [None]
  - PLEURAL DISORDER [None]
  - PURPURA [None]
  - PYREXIA [None]
